FAERS Safety Report 7161980-7 (Version None)
Quarter: 2010Q4

REPORT INFORMATION
  Report Type: 
  Country: None (occurrence: None)
  Receive Date: 20101215
  Receipt Date: 20101207
  Transmission Date: 20110411
  Serious: Yes (Other)
  Sender: FDA-Public Use
  Company Number: BR-SANOFI-AVENTIS-2010SA074450

PATIENT
  Sex: Female

DRUGS (3)
  1. LASIX [Suspect]
     Indication: RENAL DISORDER
     Route: 048
     Dates: start: 19960101, end: 20040101
  2. FUROSEMIDE [Suspect]
     Indication: RENAL DISORDER
     Route: 065
     Dates: start: 20040101
  3. METICORTEN [Suspect]
     Indication: RENAL DISORDER
     Route: 048
     Dates: start: 19960101

REACTIONS (9)
  - ANURIA [None]
  - ASTHENIA [None]
  - CONDITION AGGRAVATED [None]
  - HAEMODIALYSIS [None]
  - MEMORY IMPAIRMENT [None]
  - RENAL IMPAIRMENT [None]
  - RENAL TRANSPLANT [None]
  - SOMNOLENCE [None]
  - SYNCOPE [None]
